FAERS Safety Report 9747585 (Version 8)
Quarter: 2014Q3

REPORT INFORMATION
  Report Type: Spontaneous
  Country: US (occurrence: US)
  Receive Date: 20131212
  Receipt Date: 20140709
  Transmission Date: 20150326
  Serious: Yes (Hospitalization, Other)
  Sender: FDA-Public Use
  Company Number: US-JNJFOC-20131200787

PATIENT
  Age: 27 Year
  Sex: Female

DRUGS (9)
  1. TYLENOL REGULAR STRENGTH [Suspect]
     Active Substance: ACETAMINOPHEN
     Indication: ANKLE OPERATION
     Dosage: EVERY 4-6 HOURS
     Route: 065
     Dates: start: 201010, end: 20101015
  2. VICODIN [Suspect]
     Active Substance: ACETAMINOPHEN\HYDROCODONE BITARTRATE
     Indication: PAIN
     Route: 065
  3. PROGRAF [Concomitant]
     Active Substance: TACROLIMUS\TACROLIMUS ANHYDROUS
     Route: 065
  4. PEPCID [Concomitant]
     Active Substance: FAMOTIDINE
     Route: 065
  5. OXYCODONE [Suspect]
     Active Substance: OXYCODONE
     Indication: PAIN
     Route: 065
  6. TYLENOL EXTRA STRENGTH [Suspect]
     Active Substance: ACETAMINOPHEN
     Indication: PROCEDURAL PAIN
     Dosage: EVERY 4-6 HOURS
     Route: 065
     Dates: start: 201010, end: 20101015
  7. TYLENOL REGULAR STRENGTH [Suspect]
     Active Substance: ACETAMINOPHEN
     Route: 065
  8. METOPROLOL [Concomitant]
     Active Substance: METOPROLOL
     Route: 065
  9. TYLENOL EXTRA STRENGTH [Suspect]
     Active Substance: ACETAMINOPHEN
     Route: 065

REACTIONS (8)
  - Acute hepatic failure [Recovered/Resolved]
  - Overdose [Unknown]
  - Coagulopathy [Recovered/Resolved]
  - Toxicity to various agents [Recovered/Resolved]
  - Respiratory failure [Recovered/Resolved]
  - Renal failure [Recovered/Resolved]
  - Metabolic acidosis [Recovered/Resolved]
  - Hepatic encephalopathy [Recovered/Resolved]

NARRATIVE: CASE EVENT DATE: 201010
